FAERS Safety Report 10707057 (Version 1)
Quarter: 2015Q1

REPORT INFORMATION
  Report Type: Spontaneous
  Country: US (occurrence: None)
  Receive Date: 20150112
  Receipt Date: 20150112
  Transmission Date: 20150721
  Serious: Yes (Life-Threatening, Hospitalization)
  Sender: FDA-Public Use
  Company Number: None

PATIENT
  Age: 56 Year
  Sex: Male
  Weight: 92.99 kg

DRUGS (2)
  1. CELEBREX [Suspect]
     Active Substance: CELECOXIB
     Dosage: TAKEN BY MOUTH
     Route: 048
     Dates: start: 20141205, end: 20150101
  2. CELEBREX [Suspect]
     Active Substance: CELECOXIB
     Indication: ARTHRITIS
     Dosage: TAKEN BY MOUTH
     Route: 048
     Dates: start: 20141205, end: 20150101

REACTIONS (4)
  - Renal impairment [None]
  - Cough [None]
  - Blood creatinine increased [None]
  - Oedema peripheral [None]

NARRATIVE: CASE EVENT DATE: 20150101
